FAERS Safety Report 25700145 (Version 1)
Quarter: 2025Q3

REPORT INFORMATION
  Report Type: Spontaneous
  Country: US (occurrence: US)
  Receive Date: 20250819
  Receipt Date: 20250819
  Transmission Date: 20251021
  Serious: No
  Sender: MERCK SHARP & DOHME LLC
  Company Number: US-009507513-2320351

PATIENT
  Age: 8 Decade
  Sex: Female

DRUGS (6)
  1. DAPTOMYCIN [Suspect]
     Active Substance: DAPTOMYCIN
     Indication: Cholangitis
     Route: 042
  2. MEROPENEM [Concomitant]
     Active Substance: MEROPENEM
     Indication: Cholangitis
  3. VANCOMYCIN [Concomitant]
     Active Substance: VANCOMYCIN
     Indication: Cholangitis
  4. CEFIDEROCOL [Concomitant]
     Active Substance: CEFIDEROCOL
     Indication: Cholangitis
     Route: 042
  5. ERAVACYCLINE [Concomitant]
     Active Substance: ERAVACYCLINE
     Indication: Cholangitis
     Route: 042
  6. MICAFUNGIN [Concomitant]
     Active Substance: MICAFUNGIN SODIUM
     Indication: Cholangitis
     Route: 042

REACTIONS (1)
  - Product use in unapproved indication [Unknown]
